FAERS Safety Report 18525431 (Version 1)
Quarter: 2020Q4

REPORT INFORMATION
  Report Type: Spontaneous
  Country: PT (occurrence: PT)
  Receive Date: 20201119
  Receipt Date: 20201119
  Transmission Date: 20210114
  Serious: Yes (Death, Other)
  Sender: FDA-Public Use
  Company Number: PT-GILEAD-2020-0500365

PATIENT
  Age: 70 Year
  Sex: Male

DRUGS (5)
  1. VEKLURY [Suspect]
     Active Substance: REMDESIVIR
     Indication: COVID-19
     Dosage: 100 UNK
     Route: 042
     Dates: start: 20201016, end: 20201016
  2. VEKLURY [Suspect]
     Active Substance: REMDESIVIR
     Indication: PNEUMONIA
     Dosage: 200 MG
     Route: 042
     Dates: start: 20201015, end: 20201015
  3. VEKLURY [Suspect]
     Active Substance: REMDESIVIR
     Indication: ACUTE RESPIRATORY DISTRESS SYNDROME
  4. CANDESARTAN+HYDROCHLOROTHIAZIDE [Concomitant]
     Active Substance: CANDESARTAN CILEXETIL\HYDROCHLOROTHIAZIDE
  5. SIMVASTATIN. [Concomitant]
     Active Substance: SIMVASTATIN

REACTIONS (13)
  - Multiple organ dysfunction syndrome [Fatal]
  - Acute kidney injury [Unknown]
  - White blood cell count increased [Unknown]
  - C-reactive protein increased [Unknown]
  - Alanine aminotransferase abnormal [Unknown]
  - Aspartate aminotransferase abnormal [Unknown]
  - Anuria [Unknown]
  - Respiratory failure [Unknown]
  - Shock [Unknown]
  - Hepatobiliary disease [Unknown]
  - Gamma-glutamyltransferase abnormal [Unknown]
  - Blood alkaline phosphatase abnormal [Unknown]
  - Blood lactate dehydrogenase [Unknown]

NARRATIVE: CASE EVENT DATE: 20201015
